FAERS Safety Report 19861407 (Version 2)
Quarter: 2021Q3

REPORT INFORMATION
  Report Type: Report from Study
  Country: IT (occurrence: IT)
  Receive Date: 20210920
  Receipt Date: 20210928
  Transmission Date: 20211014
  Serious: Yes (Death, Hospitalization, Other)
  Sender: FDA-Public Use
  Company Number: IT-BRISTOL-MYERS SQUIBB COMPANY-BMS-2020-090052

PATIENT
  Age: 65 Year
  Sex: Male
  Weight: 91 kg

DRUGS (6)
  1. FUROSEMIDE. [Concomitant]
     Active Substance: FUROSEMIDE
     Indication: OEDEMA PERIPHERAL
     Dosage: 50 MILLIGRAM
     Route: 048
     Dates: start: 20201012
  2. POTASSIUM CANRENOATE [Concomitant]
     Active Substance: CANRENOATE POTASSIUM
     Indication: OEDEMA PERIPHERAL
     Dosage: 50 MILLIGRAM
     Route: 048
     Dates: start: 20201012
  3. IPILIMUMAB [Suspect]
     Active Substance: IPILIMUMAB
     Indication: HEPATOCELLULAR CARCINOMA
     Dosage: 282 MILLIGRAM
     Route: 042
     Dates: start: 20201012, end: 20201012
  4. NIVOLUMAB [Suspect]
     Active Substance: NIVOLUMAB
     Indication: HEPATOCELLULAR CARCINOMA
     Dosage: 94 MILLIGRAM
     Route: 042
     Dates: start: 20201012, end: 20201012
  5. IPILIMUMAB SUBCUTANEOUS [Suspect]
     Active Substance: IPILIMUMAB
     Indication: HEPATOCELLULAR CARCINOMA
     Dosage: 320 MILLIGRAM
     Route: 058
     Dates: start: 20200921, end: 20200921
  6. RECOMBINANT HUMAN HYALURONIDASE ENZYME PH20 [Suspect]
     Active Substance: HYALURONIDASE (HUMAN RECOMBINANT)
     Indication: HEPATOCELLULAR CARCINOMA
     Dosage: 14660 UNIT
     Route: 058
     Dates: start: 20200921, end: 20200921

REACTIONS (2)
  - Malignant neoplasm progression [Fatal]
  - Ascites [Recovered/Resolved]

NARRATIVE: CASE EVENT DATE: 20201026
